FAERS Safety Report 7627321-3 (Version None)
Quarter: 2011Q3

REPORT INFORMATION
  Report Type: 
  Country: None (occurrence: None)
  Receive Date: 20110721
  Receipt Date: 20110714
  Transmission Date: 20111222
  Serious: Yes (Hospitalization)
  Sender: FDA-Public Use
  Company Number: US-ABBOTT-11P-163-0730238-00

PATIENT
  Sex: Female
  Weight: 67.192 kg

DRUGS (9)
  1. LASIX [Concomitant]
     Indication: PRODUCT USED FOR UNKNOWN INDICATION
  2. OMEPRAZOLE [Concomitant]
     Indication: PRODUCT USED FOR UNKNOWN INDICATION
  3. LIPITOR [Concomitant]
     Indication: BLOOD CHOLESTEROL INCREASED
  4. NIASPAN [Suspect]
     Indication: MYOCARDIAL INFARCTION
     Dosage: AT HS
     Dates: start: 20010101, end: 20100901
  5. NIASPAN [Suspect]
     Indication: BLOOD CHOLESTEROL INCREASED
     Dosage: RESTARTED AFTER THREE WEEKS OFF
     Dates: start: 20101001
  6. ASPIRIN [Concomitant]
     Indication: PRODUCT USED FOR UNKNOWN INDICATION
  7. PROPANOLOL ER [Concomitant]
     Indication: ESSENTIAL TREMOR
  8. PRIMIDONE [Concomitant]
     Indication: ESSENTIAL TREMOR
  9. CRESTOR [Concomitant]
     Indication: BLOOD CHOLESTEROL INCREASED

REACTIONS (15)
  - FLUSHING [None]
  - PARAESTHESIA [None]
  - URINARY TRACT INFECTION [None]
  - PULMONARY EMBOLISM [None]
  - PRURITUS [None]
  - BLOOD URIC ACID INCREASED [None]
  - SEPSIS [None]
  - FALL [None]
  - SKIN BURNING SENSATION [None]
  - FEELING HOT [None]
  - PYREXIA [None]
  - ERYTHEMA [None]
  - MOVEMENT DISORDER [None]
  - LOSS OF CONSCIOUSNESS [None]
  - STRESS [None]
